FAERS Safety Report 19487458 (Version 2)
Quarter: 2021Q3

REPORT INFORMATION
  Report Type: Report from Study
  Country: BR (occurrence: BR)
  Receive Date: 20210702
  Receipt Date: 20210930
  Transmission Date: 20211014
  Serious: Yes (Death, Other)
  Sender: FDA-Public Use
  Company Number: BR-SHIRE-BR202033092

PATIENT
  Sex: Female
  Weight: 75.74 kg

DRUGS (1)
  1. HUMAN IMMUNOGLOBULIN; HYALURONIDASE [Suspect]
     Active Substance: HUMAN IMMUNOGLOBULIN G\HYALURONIDASE RECOMBINANT HUMAN
     Indication: PRIMARY IMMUNODEFICIENCY SYNDROME
     Dosage: 450 MILLILITER, EVERY 28 DAYS
     Route: 058
     Dates: start: 201904

REACTIONS (3)
  - COVID-19 [Fatal]
  - Sepsis [Unknown]
  - Gastrointestinal disorder [Unknown]
